FAERS Safety Report 11023385 (Version 2)
Quarter: 2015Q2

REPORT INFORMATION
  Report Type: Spontaneous
  Country: US (occurrence: US)
  Receive Date: 20150413
  Receipt Date: 20150422
  Transmission Date: 20150821
  Serious: No
  Sender: FDA-Public Use
  Company Number: US-PFIZER INC-2015121955

PATIENT
  Age: 37 Year
  Sex: Male

DRUGS (1)
  1. IRINOTECAN HCL [Suspect]
     Active Substance: IRINOTECAN HYDROCHLORIDE
     Indication: THYMIC CANCER METASTATIC
     Dosage: EVERY 2 WEEKS
     Dates: start: 20140401, end: 20150217

REACTIONS (1)
  - Diarrhoea [Unknown]
